FAERS Safety Report 6844965-7 (Version None)
Quarter: 2010Q3

REPORT INFORMATION
  Report Type: 
  Country: None (occurrence: None)
  Receive Date: 20100713
  Receipt Date: 20100702
  Transmission Date: 20110219
  Serious: Yes (Hospitalization)
  Sender: FDA-Public Use
  Company Number: RB-12512-2010

PATIENT
  Age: 29 Year
  Sex: Female

DRUGS (1)
  1. SUBOXONE [Suspect]

REACTIONS (11)
  - ABASIA [None]
  - BACK PAIN [None]
  - COLLAPSE OF LUNG [None]
  - HEART RATE ABNORMAL [None]
  - LABILE BLOOD PRESSURE [None]
  - MULTI-ORGAN FAILURE [None]
  - MUSCLE ATROPHY [None]
  - MUSCLE SPASMS [None]
  - MYALGIA [None]
  - PAIN IN EXTREMITY [None]
  - PNEUMONIA [None]
